FAERS Safety Report 9675350 (Version 1)
Quarter: 2013Q4

REPORT INFORMATION
  Report Type: Spontaneous
  Country: US (occurrence: US)
  Receive Date: 20131107
  Receipt Date: 20131107
  Transmission Date: 20140711
  Serious: No
  Sender: FDA-Public Use
  Company Number: US-PFIZER INC-2013317008

PATIENT
  Age: 61 Year
  Sex: Male
  Weight: 77.1 kg

DRUGS (9)
  1. LYRICA [Suspect]
     Indication: NEURALGIA
     Dosage: 50 MG, 1X/DAY
     Route: 048
  2. LYRICA [Suspect]
     Dosage: 50 MG, 2X/DAY
     Route: 048
  3. LYRICA [Suspect]
     Dosage: 75 MG, 1X/DAY
     Route: 048
  4. LYRICA [Suspect]
     Dosage: 50 MG, 1X/DAY
     Route: 048
  5. OMEPRAZOLE [Concomitant]
     Dosage: UNK
  6. ZETIA [Concomitant]
     Dosage: UNK
  7. CRESTOR [Concomitant]
     Dosage: UNK
  8. ALTACE [Concomitant]
     Dosage: UNK
  9. ASPIRIN [Concomitant]
     Dosage: 325 MG, UNK

REACTIONS (3)
  - Vision blurred [Unknown]
  - Dry eye [Unknown]
  - Visual impairment [Unknown]
